FAERS Safety Report 19471410 (Version 2)
Quarter: 2021Q2

REPORT INFORMATION
  Report Type: Spontaneous
  Country: BR (occurrence: BR)
  Receive Date: 20210629
  Receipt Date: 20210630
  Transmission Date: 20210717
  Serious: Yes (Other)
  Sender: FDA-Public Use
  Company Number: BR-CIPLA LTD.-2021BR04383

PATIENT

DRUGS (4)
  1. RITONAVIR. [Suspect]
     Active Substance: RITONAVIR
     Indication: ANTIRETROVIRAL THERAPY
     Dosage: TOTAL DAILY DOSE OF 100 (UNITS UNSPECIFIED), 1ST COURSE
     Route: 048
     Dates: start: 2019
  2. RALTEGRAVIR. [Suspect]
     Active Substance: RALTEGRAVIR
     Indication: ANTIRETROVIRAL THERAPY
     Dosage: TOTAL DAILY DOSE OF 800 (UNITS UNSPECIFIED), 1ST COURSE
     Route: 048
     Dates: start: 2019, end: 2019
  3. LAMIVUDINE/TENOFOVIR [Suspect]
     Active Substance: LAMIVUDINE\TENOFOVIR
     Indication: ANTIRETROVIRAL THERAPY
     Dosage: TOTAL DAILY DOSE OF 600 (UNITS UNSPECIFIED), 1ST COURSE
     Route: 048
     Dates: start: 2019
  4. ATAZANAVIR. [Suspect]
     Active Substance: ATAZANAVIR
     Indication: ANTIRETROVIRAL THERAPY
     Dosage: TOTAL DAILY DOSE 300 (UNITS UNSPECIFIED), 1ST COURSE
     Route: 048
     Dates: start: 2019

REACTIONS (2)
  - Premature delivery [Unknown]
  - Exposure during pregnancy [Unknown]

NARRATIVE: CASE EVENT DATE: 2019
